FAERS Safety Report 8923398 (Version 1)
Quarter: 2012Q4

REPORT INFORMATION
  Report Type: Report from Study
  Country: CA (occurrence: CA)
  Receive Date: 20121123
  Receipt Date: 20121123
  Transmission Date: 20130627
  Serious: Yes (Other)
  Sender: FDA-Public Use
  Company Number: CA-JNJFOC-20121107162

PATIENT
  Age: 47 Year
  Sex: Female
  Weight: 87.3 kg

DRUGS (17)
  1. REMICADE [Suspect]
     Indication: CROHN^S DISEASE
     Route: 042
     Dates: start: 20040515
  2. IRON SUPPLEMENT [Concomitant]
     Route: 065
  3. FOLIC ACID [Concomitant]
     Route: 065
  4. MULTI VIT [Concomitant]
     Route: 065
  5. IMOVANE [Concomitant]
     Route: 065
  6. METHOTREXATE [Concomitant]
     Route: 065
  7. CLONAZEPAM [Concomitant]
     Route: 065
  8. GRAVOL [Concomitant]
     Route: 065
  9. VITAMIN   B12 [Concomitant]
     Route: 065
  10. TOPIRAMATE [Concomitant]
     Route: 065
  11. TYLENOL [Concomitant]
     Route: 065
  12. PANTOLOC [Concomitant]
     Route: 065
  13. CODEINE [Concomitant]
     Route: 065
  14. RIVOTRIL [Concomitant]
     Route: 065
  15. TEMAZEPAM [Concomitant]
     Route: 065
  16. CIPRALEX [Concomitant]
     Route: 065
  17. OTHER THERAPEUTIC PRODUCT [Concomitant]
     Route: 065

REACTIONS (3)
  - Abdominal pain [Recovering/Resolving]
  - Intestinal stenosis [Recovering/Resolving]
  - Post procedural complication [Recovering/Resolving]
